FAERS Safety Report 20125290 (Version 1)
Quarter: 2021Q4

REPORT INFORMATION
  Report Type: Spontaneous
  Country: US (occurrence: None)
  Receive Date: 20211129
  Receipt Date: 20211129
  Transmission Date: 20220303
  Serious: No
  Sender: FDA-Public Use
  Company Number: 2021A802161

PATIENT
  Sex: Female
  Weight: 88.5 kg

DRUGS (2)
  1. BUDESONIDE\FORMOTEROL\GLYCOPYRRONIUM [Suspect]
     Active Substance: BUDESONIDE\FORMOTEROL\GLYCOPYRRONIUM
     Indication: Chronic obstructive pulmonary disease
     Dosage: 2 PUFFS, TWICE A DAY, 120 ACTUATOR.
     Route: 055
     Dates: start: 20210929
  2. SYMBICORT [Suspect]
     Active Substance: BUDESONIDE\FORMOTEROL FUMARATE DIHYDRATE
     Indication: Chronic obstructive pulmonary disease
     Dosage: 160/4.5 MCG UNKNOWN
     Route: 055
     Dates: start: 2006

REACTIONS (11)
  - COVID-19 [Unknown]
  - Chronic obstructive pulmonary disease [Unknown]
  - Fatigue [Unknown]
  - Throat tightness [Not Recovered/Not Resolved]
  - Post-traumatic neck syndrome [Unknown]
  - Road traffic accident [Unknown]
  - Dysphonia [Not Recovered/Not Resolved]
  - Cough [Unknown]
  - Dizziness [Unknown]
  - Intentional device misuse [Unknown]
  - Wrong technique in device usage process [Unknown]
